FAERS Safety Report 4453979-6 (Version None)
Quarter: 2004Q3

REPORT INFORMATION
  Report Type: 
  Country: None (occurrence: None)
  Receive Date: 20040920
  Receipt Date: 20040907
  Transmission Date: 20050211
  Serious: Yes (Hospitalization)
  Sender: FDA-Public Use
  Company Number: 378954

PATIENT
  Age: 90 Year
  Sex: Male

DRUGS (5)
  1. CARVEDILOL [Suspect]
     Route: 048
  2. PANALDINE [Suspect]
     Indication: THROMBOSIS PROPHYLAXIS
     Dosage: 200MG PER DAY
     Route: 048
     Dates: start: 20040728, end: 20040822
  3. ACECOL [Suspect]
     Route: 048
  4. ASPIRIN [Suspect]
     Route: 048
  5. MEVALOTIN [Suspect]
     Route: 048

REACTIONS (9)
  - ANOREXIA [None]
  - BLOOD CREATININE INCREASED [None]
  - BLOOD LACTATE DEHYDROGENASE INCREASED [None]
  - HAEMOLYTIC ANAEMIA [None]
  - MALAISE [None]
  - PLATELET COUNT DECREASED [None]
  - RENAL DISORDER [None]
  - THROMBOCYTOPENIA [None]
  - URINE OUTPUT DECREASED [None]
